FAERS Safety Report 24635974 (Version 2)
Quarter: 2025Q4

REPORT INFORMATION
  Report Type: Spontaneous
  Country: US (occurrence: US)
  Receive Date: 20241119
  Receipt Date: 20251120
  Transmission Date: 20260118
  Serious: No
  Sender: CATALYST PHARMA
  Company Number: US-CATALYST PHARMACEUTICALS-US-CATA-24-01228

PATIENT
  Age: 5 Year
  Sex: Male
  Weight: 19.728 kg

DRUGS (10)
  1. AGAMREE [Suspect]
     Active Substance: VAMOROLONE
     Indication: Duchenne muscular dystrophy
     Dosage: 2.3 ML DAILY
     Route: 048
     Dates: start: 20240910, end: 20241010
  2. AGAMREE [Suspect]
     Active Substance: VAMOROLONE
     Dosage: 2ML ONCE DAILY
     Route: 048
     Dates: start: 20241012, end: 2025
  3. AGAMREE [Suspect]
     Active Substance: VAMOROLONE
     Dosage: 2.9 ML, ONCE A DAY
     Route: 048
     Dates: start: 202507, end: 2025
  4. AGAMREE [Suspect]
     Active Substance: VAMOROLONE
     Dosage: 2.5 ML DAILY
     Route: 048
     Dates: start: 2025
  5. VITAMIN D [Concomitant]
     Active Substance: VITAMIN D NOS
     Indication: Hypovitaminosis
     Dosage: 4000 UNITS ONCE A DAY
     Route: 065
  6. VITAMIN D [Concomitant]
     Active Substance: VITAMIN D NOS
     Dosage: 400 UNITS ONCE A DAY
     Route: 065
  7. KIDS PROBIOTIC [Concomitant]
     Indication: Gastrointestinal disorder prophylaxis
     Dosage: ONE TABLET ONCE A DAY
     Route: 065
  8. MELATONIN [Concomitant]
     Active Substance: MELATONIN
     Indication: Sleep disorder
     Dosage: AS NEEDED
     Route: 065
  9. MELATONIN [Concomitant]
     Active Substance: MELATONIN
     Indication: Prophylaxis
  10. AMONDYS 45 [Concomitant]
     Active Substance: CASIMERSEN
     Indication: Duchenne muscular dystrophy
     Dosage: ONCE A WEEK
     Route: 065

REACTIONS (8)
  - Gastrointestinal infection [Recovered/Resolved]
  - Irritability [Recovered/Resolved]
  - Aggression [Not Recovered/Not Resolved]
  - Irritability [Recovered/Resolved]
  - Mood altered [Not Recovered/Not Resolved]
  - Headache [Recovered/Resolved]
  - Abdominal discomfort [Recovered/Resolved]
  - Product dose omission issue [Unknown]

NARRATIVE: CASE EVENT DATE: 20240901
